FAERS Safety Report 12952995 (Version 2)
Quarter: 2016Q4

REPORT INFORMATION
  Report Type: Report from Study
  Country: US (occurrence: US)
  Receive Date: 20161117
  Receipt Date: 20161130
  Transmission Date: 20170207
  Serious: Yes (Death, Hospitalization)
  Sender: FDA-Public Use
  Company Number: US-ACTELION-A-NJ2016-145698

PATIENT
  Age: 9 Month
  Sex: Male

DRUGS (7)
  1. CAPTOPRIL. [Concomitant]
     Active Substance: CAPTOPRIL
     Dosage: 5 MG, Q12HRS
     Route: 048
     Dates: start: 20161112
  2. DIGOXIN. [Concomitant]
     Active Substance: DIGOXIN
     Dosage: 20 MCG, Q12HRS
     Route: 048
     Dates: start: 20161112
  3. TADALAFIL [Concomitant]
     Active Substance: TADALAFIL
     Dosage: 2.5 MG, UNK
     Route: 048
     Dates: start: 20161112
  4. LOVENOX [Concomitant]
     Active Substance: ENOXAPARIN SODIUM
     Dosage: 10 MG, Q12HRS
     Route: 058
     Dates: start: 20161112
  5. TRACLEER [Suspect]
     Active Substance: BOSENTAN
     Indication: PULMONARY ARTERIAL HYPERTENSION
     Dosage: 5 MG, EVERY 12 HR
     Route: 048
     Dates: start: 20160617
  6. CARVEDILOL. [Concomitant]
     Active Substance: CARVEDILOL
     Dosage: 1 MG, Q12HRS
     Route: 048
     Dates: start: 20161112
  7. ALDACTONE [Concomitant]
     Active Substance: SPIRONOLACTONE
     Dosage: 4.5 MG, QD
     Route: 048
     Dates: start: 20161112

REACTIONS (4)
  - Respiratory tract infection [Fatal]
  - General physical health deterioration [Fatal]
  - Oxygen saturation decreased [Fatal]
  - Dyspnoea [Fatal]
